FAERS Safety Report 16745055 (Version 1)
Quarter: 2019Q3

REPORT INFORMATION
  Report Type: Report from Study
  Country: KR (occurrence: KR)
  Receive Date: 20190827
  Receipt Date: 20190827
  Transmission Date: 20191005
  Serious: Yes (Hospitalization)
  Sender: FDA-Public Use
  Company Number: KR-PFIZER INC-2019005404

PATIENT
  Age: 56 Year
  Sex: Male
  Weight: 72.5 kg

DRUGS (56)
  1. GASTER [FAMOTIDINE] [Concomitant]
     Dosage: 20 MG, 2X/DAY
     Route: 048
     Dates: start: 20150123, end: 20150125
  2. PETHIDINE [Concomitant]
     Active Substance: MEPERIDINE
     Dosage: 25 MG, ONCE
     Route: 030
     Dates: start: 20150716, end: 20150716
  3. GODEX [ADENINE HYDROCHLORIDE;BIFENDATE;CARNITINE OROTATE;CYANOCOBALAMI [Concomitant]
     Dosage: 2 CAP, UNK
     Route: 048
     Dates: start: 20150617, end: 20151007
  4. CEFAMEZIN [CEFAZOLIN SODIUM] [Concomitant]
     Dosage: 1 GM, 2X/DAY
     Route: 042
     Dates: start: 20160306, end: 20160310
  5. ESPERSON [Concomitant]
     Dosage: 20 ML, AS NEEDED, LOTION, OTHER (DERMA)
     Dates: start: 20160907, end: 20171030
  6. IRCODON [Concomitant]
     Active Substance: OXYCODONE HYDROCHLORIDE
     Dosage: 5 MG, ONCE
     Route: 048
     Dates: start: 20160709, end: 20160709
  7. PETHIDINE [Concomitant]
     Active Substance: MEPERIDINE
     Dosage: 25 MG, ONCE
     Route: 030
     Dates: start: 20150428, end: 20150428
  8. SILYCEF [Concomitant]
     Dosage: 1 CAP, TWICE DAILY
     Route: 048
     Dates: start: 20150326, end: 20150616
  9. ESPERSON [Concomitant]
     Dosage: 20 ML, AS NEEDED, LOTION
     Route: 061
     Dates: start: 20160308, end: 20160308
  10. TIROXIN [CEFROXADINE] [Concomitant]
     Active Substance: CEFROXADINE
     Dosage: 250 MG, 2X/DAY
     Route: 048
     Dates: start: 20160312, end: 20160321
  11. CURAN [Concomitant]
     Active Substance: RANITIDINE HYDROCHLORIDE
     Dosage: 150 MG, 2X/DAY
     Route: 048
     Dates: start: 20160312, end: 20160321
  12. PENIRAMIN [Concomitant]
     Dosage: 2 MG, 2X/DAY
     Route: 048
     Dates: start: 20160907, end: 20161005
  13. LACTICARE HC [HYDROCORTISONE] [Concomitant]
     Dosage: 1 BOT, ONCE, LOTION
     Route: 061
     Dates: start: 20160614, end: 20160714
  14. AUGMENTIN [Concomitant]
     Active Substance: AMOXICILLIN\CLAVULANATE POTASSIUM
     Dosage: 625MG/ 100ML, 3X/DAY
     Route: 048
     Dates: start: 20180514, end: 20180527
  15. NORMAL SALINE [Concomitant]
     Active Substance: SODIUM CHLORIDE
     Dosage: 1000 MG/ML, ONCE
     Route: 042
     Dates: start: 20160518, end: 20160523
  16. ESPERSON [Concomitant]
     Dosage: 20 ML, AS NEEDED, LOTION, OTHER (DERMA)
     Dates: start: 20180418, end: 20180423
  17. VAXIGRIPTETRA [Concomitant]
     Active Substance: INFLUENZA VIRUS VACCINE QUADRIVALENT TYPE A+B
     Dosage: 0.5 CC, ONCE
     Route: 030
     Dates: start: 20181010, end: 20181010
  18. GASMOTIN [Concomitant]
     Active Substance: MOSAPRIDE CITRATE
     Dosage: 5 MG, ONCE
     Route: 048
     Dates: start: 20150109, end: 20150109
  19. PETHIDINE [Concomitant]
     Active Substance: MEPERIDINE
     Indication: PAIN
     Dosage: 25 MG, ONCE
     Route: 042
     Dates: start: 20150112, end: 20150112
  20. PETHIDINE [Concomitant]
     Active Substance: MEPERIDINE
     Dosage: 25 MG, ONCE
     Route: 030
     Dates: start: 20151008, end: 20151008
  21. SUPLAX [Concomitant]
     Dosage: 100 MG, 2X/DAY
     Route: 048
     Dates: start: 20160304, end: 20160306
  22. CEFAMEZIN [CEFAZOLIN SODIUM] [Concomitant]
     Dosage: 1 GM, 2X/DAY
     Route: 042
     Dates: start: 20160518, end: 20160522
  23. LOCERYL [Concomitant]
     Active Substance: AMOROLFINE HYDROCHLORIDE
     Dosage: 20 GM, AS NEEDED
     Route: 061
     Dates: start: 20160517, end: 20160523
  24. TIROXIN [CEFROXADINE] [Concomitant]
     Active Substance: CEFROXADINE
     Dosage: 250 MG, 3X/DAY
     Route: 048
     Dates: start: 20160714, end: 20160721
  25. ULTRACET [Concomitant]
     Active Substance: ACETAMINOPHEN\TRAMADOL HYDROCHLORIDE
     Dosage: 1 TABS, 3X/DAY
     Route: 048
     Dates: start: 20160502, end: 20160509
  26. PARASONE [Concomitant]
     Dosage: 10 GM, AS NEEDED
     Route: 023
     Dates: start: 20180514, end: 20180520
  27. COUGH SYRUP [ANTIMONY POTASSIUM TARTRATE;PAPAVER SOMNIFERUM TINCTURE;T [Concomitant]
     Dosage: 20 ML, AS NEEDED
     Route: 048
     Dates: start: 20180514, end: 20180527
  28. RINO EBASTEL [Concomitant]
     Active Substance: EBASTINE\PSEUDOEPHEDRINE HYDROCHLORIDE
     Dosage: 1 TAB, EVERY DAY
     Route: 048
     Dates: start: 20180514, end: 20180527
  29. CODENAL [CHLORPHENAMINE MALEATE;DIHYDROCODEINE BITARTRATE;GUAIFENESIN; [Concomitant]
     Dosage: 1 DF, 2X/DAY[DIHYDROCODEINE BITARTRATE 5MG]/[METHYLEPHEDRINE HYDROCHLORIDE-DL 17.5]/CHLORPHENAMINE M
     Route: 048
     Dates: start: 20180514, end: 20180527
  30. PETHIDINE [Concomitant]
     Active Substance: MEPERIDINE
     Dosage: 25 MG, ONCE
     Route: 030
     Dates: start: 20151229, end: 20151229
  31. TIROXIN [CEFROXADINE] [Concomitant]
     Active Substance: CEFROXADINE
     Dosage: 250 MG, 3X/DAY
     Route: 048
     Dates: start: 20160523, end: 20160525
  32. PENIRAMIN [Concomitant]
     Dosage: 2 MG, 2X/DAY
     Route: 048
     Dates: start: 20160614, end: 20160714
  33. ALBIS [Concomitant]
     Active Substance: BISMUTH SUBCITRATE\RANITIDINE HYDROCHLORIDE\SUCRALFATE
     Dosage: 2 TAB, 2X/DAY
     Route: 048
     Dates: start: 20150110, end: 20150123
  34. TIROXIN [CEFROXADINE] [Concomitant]
     Active Substance: CEFROXADINE
     Dosage: 250 MG, ONCE
     Route: 048
     Dates: start: 20160311, end: 20160311
  35. TIROXIN [CEFROXADINE] [Concomitant]
     Active Substance: CEFROXADINE
     Dosage: 250 MG, 3X/DAY
     Route: 048
     Dates: start: 20160517, end: 20160518
  36. CURAN [Concomitant]
     Active Substance: RANITIDINE HYDROCHLORIDE
     Dosage: 150 MG, ONCE
     Route: 048
     Dates: start: 20160311, end: 20160311
  37. DERMOVATE [Concomitant]
     Active Substance: CLOBETASOL
     Dosage: 10 G, AS NEEDED, OINT
     Route: 061
     Dates: start: 20160518, end: 20160523
  38. TALION [BEPOTASTINE BESILATE] [Concomitant]
     Active Substance: BEPOTASTINE BESYLATE
     Dosage: 10 MG, 2X/DAY
     Route: 048
     Dates: start: 20160907, end: 20161005
  39. BOSUTINIB [Suspect]
     Active Substance: BOSUTINIB
     Dosage: 400 MG, UNK
     Dates: start: 20150701, end: 20160307
  40. GASMOTIN [Concomitant]
     Active Substance: MOSAPRIDE CITRATE
     Dosage: 5 MG, ONCE
     Route: 048
     Dates: start: 20150110, end: 20150125
  41. PETHIDINE [Concomitant]
     Active Substance: MEPERIDINE
     Dosage: 25 MG, ONCE
     Route: 030
     Dates: start: 20160322, end: 20160322
  42. CEFAMEZIN [CEFAZOLIN SODIUM] [Concomitant]
     Dosage: 1 GM, 2X/DAY
     Route: 042
     Dates: start: 20160709, end: 20160714
  43. ESPERSON [Concomitant]
     Dosage: 20 ML, AS NEEDED, LOTION
     Route: 061
     Dates: start: 20160517, end: 20160523
  44. LOCERYL [Concomitant]
     Active Substance: AMOROLFINE HYDROCHLORIDE
     Dosage: 20 CREAM, AS NEEDED
     Route: 061
     Dates: start: 20160308, end: 20160308
  45. DENOGAN [Concomitant]
     Active Substance: PROPACETAMOL HYDROCHLORIDE
     Dosage: 2 G, ONCE
     Route: 042
     Dates: start: 20160709, end: 20160709
  46. CETAPHIL [CETYL ALCOHOL;TOCOPHERYL ACETATE] [Concomitant]
     Dosage: 295 ML, AS NEEDED, OTHER (DERMA)
     Dates: start: 20171227, end: 20180109
  47. BOSUTINIB [Suspect]
     Active Substance: BOSUTINIB
     Dosage: 400 MG, UNK
     Dates: start: 20150130, end: 20150617
  48. BOSUTINIB [Suspect]
     Active Substance: BOSUTINIB
     Dosage: 400 MG, UNK
     Dates: start: 20160322
  49. ALBIS [Concomitant]
     Active Substance: BISMUTH SUBCITRATE\RANITIDINE HYDROCHLORIDE\SUCRALFATE
     Dosage: 1 TAB, ONCE
     Route: 048
     Dates: start: 20150109, end: 20150109
  50. ARESTAL [Concomitant]
     Active Substance: LOPERAMIDE OXIDE
     Indication: DIARRHOEA
     Dosage: 2 MG, AS NEEDED
     Route: 048
     Dates: start: 20150117, end: 20150123
  51. NORMAL SALINE [Concomitant]
     Active Substance: SODIUM CHLORIDE
     Dosage: 1000 MG/ML, ONCE
     Route: 042
     Dates: start: 20160306, end: 20160310
  52. TALION [BEPOTASTINE BESILATE] [Concomitant]
     Active Substance: BEPOTASTINE BESYLATE
     Dosage: 10 MG, 2X/DAY
     Route: 048
     Dates: start: 20160614, end: 20160714
  53. TALION [BEPOTASTINE BESILATE] [Concomitant]
     Active Substance: BEPOTASTINE BESYLATE
     Dosage: 10 MG, 2X/DAY
     Route: 048
     Dates: start: 20171227, end: 20180109
  54. PENIRAMIN [Concomitant]
     Dosage: 2 MG, 2X/DAY
     Route: 048
     Dates: start: 20171227, end: 20180109
  55. NEODEX [DEXAMETHASONE;NEOMYCIN SULFATE] [Concomitant]
     Dosage: 5 GM, AS NEEDED
     Route: 047
     Dates: start: 20160713, end: 20160713
  56. VAXIGRIPTETRA [Concomitant]
     Active Substance: INFLUENZA VIRUS VACCINE QUADRIVALENT TYPE A+B
     Indication: IMMUNISATION
     Dosage: 0.5 CC, ONCE
     Route: 030
     Dates: start: 20171101, end: 20171101

REACTIONS (1)
  - Cellulitis [Recovered/Resolved]

NARRATIVE: CASE EVENT DATE: 20181231
